FAERS Safety Report 7342065-3 (Version None)
Quarter: 2011Q1

REPORT INFORMATION
  Report Type: 
  Country: None (occurrence: None)
  Receive Date: 20110309
  Receipt Date: 20110211
  Transmission Date: 20110831
  Serious: No
  Sender: FDA-Public Use
  Company Number: US-B.I. PHARMACEUTICALS,INC./RIDGEFIELD-2011-BP-05841BP

PATIENT
  Age: 65 Year
  Sex: Female

DRUGS (11)
  1. PREDNISONE [Concomitant]
     Indication: CHRONIC OBSTRUCTIVE PULMONARY DISEASE
     Dosage: 5 MG
  2. SPIRIVA [Suspect]
     Indication: CHRONIC OBSTRUCTIVE PULMONARY DISEASE
     Dosage: 18 MCG
     Route: 055
     Dates: start: 20050201
  3. MULTI-VITAMIN [Concomitant]
     Indication: SUPPLEMENTATION THERAPY
  4. OXYGEN [Concomitant]
     Indication: CHRONIC OBSTRUCTIVE PULMONARY DISEASE
  5. ADDERALLL [Concomitant]
     Indication: DEPRESSION
  6. PLAVIX [Concomitant]
     Indication: HYPERTENSION
  7. LOTRIL [Concomitant]
     Indication: HYPERTENSION
  8. SINGULAIR [Concomitant]
     Indication: MULTIPLE ALLERGIES
  9. EFFEXOR [Concomitant]
     Indication: DEPRESSION
     Dosage: 300 MG
  10. FISH OIL [Concomitant]
     Indication: SUPPLEMENTATION THERAPY
  11. FORADIL [Concomitant]
     Indication: CHRONIC OBSTRUCTIVE PULMONARY DISEASE

REACTIONS (1)
  - POLLAKIURIA [None]
